FAERS Safety Report 13040383 (Version 1)
Quarter: 2016Q4

REPORT INFORMATION
  Report Type: Spontaneous
  Country: US (occurrence: US)
  Receive Date: 20161219
  Receipt Date: 20161219
  Transmission Date: 20170207
  Serious: No
  Sender: FDA-Public Use
  Company Number: US-AMNEAL PHARMACEUTICALS-2016AMN00035

PATIENT
  Age: 1 Month
  Sex: Female
  Weight: 4.82 kg

DRUGS (2)
  1. NIZATIDINE. [Suspect]
     Active Substance: NIZATIDINE
     Indication: GASTROOESOPHAGEAL REFLUX DISEASE
     Dosage: 0.5 ML, 4X/DAY
     Route: 048
     Dates: start: 20151202, end: 20151216
  2. NIZATIDINE. [Suspect]
     Active Substance: NIZATIDINE
     Dosage: 0.5 ML, 2X/DAY
     Route: 048
     Dates: start: 20151216, end: 20151221

REACTIONS (5)
  - Medication error [Not Recovered/Not Resolved]
  - Irritability [Recovered/Resolved]
  - Feeling abnormal [Recovered/Resolved]
  - Constipation [Recovered/Resolved]
  - Incorrect dose administered [Not Recovered/Not Resolved]

NARRATIVE: CASE EVENT DATE: 20151202
